FAERS Safety Report 5354850-8 (Version None)
Quarter: 2007Q2

REPORT INFORMATION
  Report Type: 
  Country: None (occurrence: None)
  Receive Date: 20070612
  Receipt Date: 20070601
  Transmission Date: 20071010
  Serious: Yes (Hospitalization)
  Sender: FDA-Public Use
  Company Number: SK-PFIZER INC-2007035874

PATIENT
  Sex: Male
  Weight: 103 kg

DRUGS (2)
  1. SU-011,248 [Suspect]
     Indication: RENAL CELL CARCINOMA STAGE UNSPECIFIED
     Route: 048
     Dates: start: 20060127, end: 20070423
  2. SU-011,248 [Suspect]

REACTIONS (1)
  - MYOCARDIAL INFARCTION [None]
